FAERS Safety Report 9537410 (Version 1)
Quarter: 2013Q3

REPORT INFORMATION
  Report Type: Spontaneous
  Country: GB (occurrence: GB)
  Receive Date: 20130919
  Receipt Date: 20130919
  Transmission Date: 20140515
  Serious: Yes (Other)
  Sender: FDA-Public Use
  Company Number: PHFR2013GB005265

PATIENT
  Sex: Male

DRUGS (2)
  1. CLOZAPINE [Suspect]
     Indication: ANXIETY
     Dosage: UNK UKN, UNK
  2. CLOZAPINE [Suspect]
     Indication: OFF LABEL USE

REACTIONS (1)
  - Adverse drug reaction [Unknown]
